FAERS Safety Report 18213741 (Version 4)
Quarter: 2020Q4

REPORT INFORMATION
  Report Type: Spontaneous
  Country: CO (occurrence: CO)
  Receive Date: 20200831
  Receipt Date: 20201203
  Transmission Date: 20210113
  Serious: Yes (Life-Threatening, Hospitalization, Disabling, Other)
  Sender: FDA-Public Use
  Company Number: CO-009507513-2008COL013129

PATIENT
  Age: 72 Year
  Sex: Male
  Weight: 65 kg

DRUGS (2)
  1. VYTORIN [Suspect]
     Active Substance: EZETIMIBE\SIMVASTATIN
     Indication: DYSLIPIDAEMIA
  2. VYTORIN [Suspect]
     Active Substance: EZETIMIBE\SIMVASTATIN
     Indication: BLOOD CHOLESTEROL ABNORMAL
     Dosage: 1 DOSAGE FORM, DAILY
     Route: 048
     Dates: start: 20060617, end: 200705

REACTIONS (23)
  - Inflammation [Not Recovered/Not Resolved]
  - Emotional disorder [Unknown]
  - Arrhythmia [Unknown]
  - Ill-defined disorder [Unknown]
  - Renal disorder [Not Recovered/Not Resolved]
  - Metabolic disorder [Not Recovered/Not Resolved]
  - Peripheral swelling [Unknown]
  - Allergy to chemicals [Unknown]
  - Blood glucose increased [Unknown]
  - Immune system disorder [Not Recovered/Not Resolved]
  - Swelling face [Unknown]
  - Food allergy [Not Recovered/Not Resolved]
  - Joint swelling [Unknown]
  - Arthralgia [Unknown]
  - Revascularisation procedure [Not Recovered/Not Resolved]
  - Drug hypersensitivity [Not Recovered/Not Resolved]
  - Myocardial infarction [Not Recovered/Not Resolved]
  - Allergy to chemicals [Not Recovered/Not Resolved]
  - Genital swelling [Unknown]
  - Reaction to food additive [Unknown]
  - General physical health deterioration [Not Recovered/Not Resolved]
  - Liver disorder [Not Recovered/Not Resolved]
  - Thrombosis [Recovered/Resolved]

NARRATIVE: CASE EVENT DATE: 200704
